FAERS Safety Report 7342698-4 (Version None)
Quarter: 2011Q1

REPORT INFORMATION
  Report Type: 
  Country: None (occurrence: None)
  Receive Date: 20110310
  Receipt Date: 20110308
  Transmission Date: 20110831
  Serious: Yes (Other)
  Sender: FDA-Public Use
  Company Number: US-PFIZER INC-2011050782

PATIENT
  Sex: Female
  Weight: 77.098 kg

DRUGS (3)
  1. CELEBREX [Suspect]
     Dosage: 200 MG, 2X/DAY
     Dates: start: 20110101, end: 20110307
  2. ACTONEL [Concomitant]
     Indication: MINERAL SUPPLEMENTATION
     Dosage: 150 MG, MONTHLY
     Route: 048
  3. CELEBREX [Suspect]
     Indication: ARTHRITIS
     Dosage: 100 MG, 2X/DAY
     Route: 048
     Dates: start: 20020101, end: 20110101

REACTIONS (6)
  - DIZZINESS [None]
  - WRONG TECHNIQUE IN DRUG USAGE PROCESS [None]
  - INAPPROPRIATE SCHEDULE OF DRUG ADMINISTRATION [None]
  - BALANCE DISORDER [None]
  - RASH [None]
  - PRURITUS [None]
